FAERS Safety Report 8308960-3 (Version None)
Quarter: 2012Q2

REPORT INFORMATION
  Report Type: 
  Country: None (occurrence: None)
  Receive Date: 20120424
  Receipt Date: 20120419
  Transmission Date: 20120825
  Serious: Yes (Hospitalization, Other)
  Sender: FDA-Public Use
  Company Number: US-ABBOTT-12P-163-0917638-00

PATIENT
  Age: 17 Year
  Sex: Female

DRUGS (2)
  1. HUMIRA [Suspect]
     Dates: start: 20120201
  2. HUMIRA [Suspect]
     Indication: CROHN'S DISEASE
     Dates: start: 20100915

REACTIONS (4)
  - ILEAL STENOSIS [None]
  - INTESTINAL OBSTRUCTION [None]
  - PYREXIA [None]
  - VOMITING [None]
